FAERS Safety Report 5401307-1 (Version None)
Quarter: 2007Q3

REPORT INFORMATION
  Report Type: 
  Country: None (occurrence: None)
  Receive Date: 20070725
  Receipt Date: 20070717
  Transmission Date: 20080115
  Serious: Yes (Hospitalization, Disabling)
  Sender: FDA-Public Use
  Company Number: OSCN-PR-0706S-0248

PATIENT
  Age: 44 Year
  Sex: Male

DRUGS (1)
  1. OMNISCAN [Suspect]
     Indication: BRAIN TUMOUR OPERATION
     Dosage: 15 ML, SINGLE DOSE, I.V.
     Route: 042
     Dates: start: 20070327, end: 20070327

REACTIONS (4)
  - HAEMODIALYSIS [None]
  - NEPHROGENIC SYSTEMIC FIBROSIS [None]
  - RHABDOMYOLYSIS [None]
  - SEPSIS [None]
